FAERS Safety Report 9387816 (Version 1)
Quarter: 2013Q3

REPORT INFORMATION
  Report Type: Spontaneous
  Country: GB (occurrence: None)
  Receive Date: 20130703
  Receipt Date: 20130703
  Transmission Date: 20140515
  Serious: Yes (Life-Threatening)
  Sender: FDA-Public Use
  Company Number: GB-DEXPHARM-20130366

PATIENT
  Age: 68 Year
  Sex: Female

DRUGS (6)
  1. CHLORHEXIDINE GLUCONATE [Suspect]
     Route: 061
     Dates: start: 20130530, end: 20130530
  2. DEXAMETHASONE [Concomitant]
  3. FENTANYL [Concomitant]
  4. MEBEVERINE [Concomitant]
  5. MIDAZOLAM [Concomitant]
  6. ONDANSETRON [Concomitant]

REACTIONS (3)
  - Blood blister [None]
  - Blood pressure decreased [None]
  - Application site vesicles [None]
